FAERS Safety Report 8296827-9 (Version None)
Quarter: 2012Q2

REPORT INFORMATION
  Report Type: 
  Country: None (occurrence: None)
  Receive Date: 20120419
  Receipt Date: 20110606
  Transmission Date: 20120825
  Serious: No
  Sender: FDA-Public Use
  Company Number: US-ASTRAZENECA-2010SE57900

PATIENT
  Age: 947 Month
  Sex: Female
  Weight: 97.5 kg

DRUGS (11)
  1. XANAX [Concomitant]
  2. VICODIN [Concomitant]
  3. NEXIUM [Suspect]
     Indication: GASTROOESOPHAGEAL REFLUX DISEASE
     Route: 048
  4. WARFARIN SODIUM [Concomitant]
  5. ARICEPT [Concomitant]
  6. SEROQUEL [Suspect]
     Indication: SLEEP DISORDER
     Route: 048
     Dates: start: 20050101
  7. LYRICA [Concomitant]
  8. CELEBREX [Concomitant]
  9. DETROL [Concomitant]
  10. CYMBALTA [Concomitant]
  11. AMBIEN [Concomitant]

REACTIONS (8)
  - ARTHRALGIA [None]
  - IRON DEFICIENCY [None]
  - FIBROMYALGIA [None]
  - OFF LABEL USE [None]
  - MALAISE [None]
  - RASH PRURITIC [None]
  - HEADACHE [None]
  - EYE IRRITATION [None]
